FAERS Safety Report 7591735-0 (Version None)
Quarter: 2011Q2

REPORT INFORMATION
  Report Type: 
  Country: None (occurrence: None)
  Receive Date: 20110627
  Receipt Date: 20110617
  Transmission Date: 20111010
  Serious: Yes (Death, Other)
  Sender: FDA-Public Use
  Company Number: GER/UKI/11/0018375

PATIENT
  Age: 43 Year
  Sex: Male
  Weight: 71.2147 kg

DRUGS (3)
  1. VENTOLIN [Concomitant]
  2. RISPERIDONE [Suspect]
     Indication: SCHIZOPHRENIA
     Dosage: 6 MG, ORAL
     Route: 048
  3. RISPERDAL CONSTA [Suspect]
     Indication: SCHIZOPHRENIA
     Dosage: 50 MG, 1 IN 2 WK, INTRAMUSCULAR
     Route: 030

REACTIONS (3)
  - GASTRITIS EROSIVE [None]
  - SUDDEN DEATH [None]
  - INCREASED APPETITE [None]
